FAERS Safety Report 4372599-5 (Version None)
Quarter: 2004Q2

REPORT INFORMATION
  Report Type: 
  Country: None (occurrence: None)
  Receive Date: 20040526
  Receipt Date: 20040504
  Transmission Date: 20050107
  Serious: Yes (Hospitalization)
  Sender: FDA-Public Use
  Company Number: 2004EN000069

PATIENT
  Age: 15 Year
  Sex: Female

DRUGS (14)
  1. ABELCET [Suspect]
     Dosage: IV
     Route: 042
     Dates: start: 20040312, end: 20040407
  2. BAYPEN [Concomitant]
  3. CIPROFLOXACIN [Concomitant]
  4. MOPRAL [Concomitant]
  5. AMLOR [Concomitant]
  6. ROVALCYTE [Concomitant]
  7. CORTANCYL [Concomitant]
  8. PROGRAF [Concomitant]
  9. URSOLVAN [Concomitant]
  10. UN-ALFA [Concomitant]
  11. ULCAR [Concomitant]
  12. NICARDIPINE HCL [Concomitant]
  13. LASILIX [Concomitant]
  14. SOLU-MEDROL [Concomitant]

REACTIONS (3)
  - HEPATORENAL SYNDROME [None]
  - LIVER TRANSPLANT REJECTION [None]
  - PANCYTOPENIA [None]
